FAERS Safety Report 5360430-0 (Version None)
Quarter: 2007Q2

REPORT INFORMATION
  Report Type: 
  Country: None (occurrence: None)
  Receive Date: 20070618
  Receipt Date: 20070611
  Transmission Date: 20071010
  Serious: Yes (Death)
  Sender: FDA-Public Use
  Company Number: FR-AVENTIS-200711332FR

PATIENT
  Age: 78 Year
  Sex: Male

DRUGS (10)
  1. LOVENOX [Suspect]
     Route: 058
     Dates: end: 20070303
  2. LOVENOX [Suspect]
     Route: 058
     Dates: start: 20070405, end: 20070417
  3. PREVISCAN                          /00789001/ [Suspect]
     Route: 048
  4. AUGMENTIN                          /00756801/ [Concomitant]
     Route: 048
  5. ALLOPURINOL [Concomitant]
     Route: 048
  6. LASILIX                            /00032601/ [Concomitant]
     Route: 048
  7. DIGITALINE NATIVELLE [Concomitant]
     Route: 048
  8. OROCAL D3 [Concomitant]
  9. BRICANYL [Concomitant]
  10. ATROVENT [Concomitant]

REACTIONS (5)
  - ANAEMIA [None]
  - DRUG INTERACTION [None]
  - HAEMATOMA [None]
  - HYPERKALAEMIA [None]
  - RENAL FAILURE ACUTE [None]
